FAERS Safety Report 14192207 (Version 1)
Quarter: 2017Q4

REPORT INFORMATION
  Report Type: Spontaneous
  Country: US (occurrence: US)
  Receive Date: 20171115
  Receipt Date: 20171115
  Transmission Date: 20180321
  Serious: No
  Sender: FDA-Public Use
  Company Number: US-PFIZER INC-2017488607

PATIENT
  Age: 28 Year
  Sex: Female

DRUGS (1)
  1. IBUPROFEN. [Suspect]
     Active Substance: IBUPROFEN
     Indication: PAIN
     Dosage: 2 DF, 3X/DAY (I^LL TAKE UP TO 6 STORE BRAND IBUPROFEN PILLS IN A DAY. 2 PILLS, 3X A DAY)

REACTIONS (1)
  - Drug effect incomplete [Unknown]
